FAERS Safety Report 19674294 (Version 1)
Quarter: 2021Q3

REPORT INFORMATION
  Report Type: Report from Study
  Country: US (occurrence: US)
  Receive Date: 20210809
  Receipt Date: 20210809
  Transmission Date: 20211014
  Serious: No
  Sender: FDA-Public Use
  Company Number: US-ACADIA PHARMACEUTICALS INC.-ACA-2021-PIM-002624

PATIENT
  Sex: Male
  Weight: 98 kg

DRUGS (13)
  1. NUPLAZID [Suspect]
     Active Substance: PIMAVANSERIN TARTRATE
     Indication: PARKINSON^S DISEASE PSYCHOSIS
     Dosage: 34 MILLIGRAM, QD
     Route: 048
     Dates: start: 20210614
  2. CARBIDOPA/LEVODOPA [Concomitant]
     Active Substance: CARBIDOPA\LEVODOPA
     Dosage: 3 TIMES A DAY
  3. IRON [Concomitant]
     Active Substance: IRON
  4. NUPLAZID [Suspect]
     Active Substance: PIMAVANSERIN TARTRATE
     Indication: DELUSION
  5. FISH OIL [Concomitant]
     Active Substance: FISH OIL
  6. NUPLAZID [Suspect]
     Active Substance: PIMAVANSERIN TARTRATE
     Indication: HALLUCINATION
  7. GLYCOPYRROLATE. [Concomitant]
     Active Substance: GLYCOPYRROLATE
  8. STOOL SOFTENER (DOCUSATE) [Concomitant]
     Active Substance: DOCUSATE
     Dosage: AS NEEDED
  9. ROBINUL [Concomitant]
     Active Substance: GLYCOPYRROLATE
     Dosage: 2MG HALF TABLET 3XDAY
  10. VITAMIN D NOS [Concomitant]
     Active Substance: VITAMIN D NOS
  11. LASIX [Concomitant]
     Active Substance: FUROSEMIDE
     Dosage: AS NEEDED
  12. ASPIRIN [ACETYLSALICYLIC ACID] [Concomitant]
     Active Substance: ASPIRIN
  13. LAXATIVE [BISACODYL] [Concomitant]
     Active Substance: BISACODYL
     Dosage: AS NEEDED

REACTIONS (4)
  - Oedema peripheral [Unknown]
  - Condition aggravated [Unknown]
  - Drug ineffective [Unknown]
  - Hallucination, tactile [Unknown]
